FAERS Safety Report 9803776 (Version 2)
Quarter: 2014Q1

REPORT INFORMATION
  Report Type: Spontaneous
  Country: US (occurrence: None)
  Receive Date: 20140103
  Receipt Date: 20140218
  Transmission Date: 20141002
  Serious: Yes (Hospitalization, Other)
  Sender: FDA-Public Use
  Company Number: KAD201310-001465

PATIENT
  Age: 57 Year
  Sex: Male
  Weight: 89.4 kg

DRUGS (25)
  1. RIBASPHERE [Suspect]
     Indication: HEPATITIS C
     Route: 048
     Dates: start: 20130926, end: 20131008
  2. SOF/LDV (SOFOSBUVIR, LEDIPASVIR) [Suspect]
     Indication: HEPATITIS C
     Dosage: TABLET, 400/90 MCG FIXED DOSE COMBINATION, 1 DOSAGE FORM, ONCE DAILY IN AM, ORAL?
     Route: 048
     Dates: start: 20130926
  3. TELAPREVIR (TELAPREVIR) [Suspect]
     Indication: HEPATITIS C
     Dosage: STOPPED
  4. PEGYLATED INTERFERON (PEGYLATED INTERFERON) [Suspect]
     Indication: HEPATITIS C
     Dosage: STOPPED
  5. LEXAPRO [Concomitant]
  6. LAMICTAL (LAMOTRIGINE) [Concomitant]
  7. ROPINIROLE (ROPINIROLE) [Concomitant]
  8. PROGRAF (TACROLIMUS) [Concomitant]
  9. TRAMADOL (TRAMADOL) [Concomitant]
  10. AMBIEN [Concomitant]
  11. ECOTRIN [Concomitant]
  12. PROAIR HFA (ALBUTEROL) [Concomitant]
  13. NORVASC [Concomitant]
  14. OXYCODONE HCL [Concomitant]
  15. FK506 [Concomitant]
  16. CLINDAMYCIN (CLINDAMYCIN) [Concomitant]
  17. DIFLUCAN (FLUCONAZOLE) [Concomitant]
  18. NEURONTIN (GABAPENTIN) [Concomitant]
  19. ATARAX (HYDROXYZINE) [Concomitant]
  20. LACTULOSE (LACTULOSE) [Concomitant]
  21. CELLCEPT (MYCOPHENOLATE MOFETIL) TABLET [Concomitant]
  22. SUDAFED [Concomitant]
  23. TRIAM [Concomitant]
  24. ASPIRIN (ASPIRIN) [Concomitant]
  25. TACROLIMUS (TACROLIMUS) [Concomitant]

REACTIONS (15)
  - Anaemia [None]
  - Hepatitis C [None]
  - Rash [None]
  - Anaemia [None]
  - Headache [None]
  - Dyspnoea [None]
  - Fatigue [None]
  - Asthenia [None]
  - Cholestasis [None]
  - Arthralgia [None]
  - Tremor [None]
  - Pruritus [None]
  - Dyspnoea exertional [None]
  - Orthopnoea [None]
  - Transplant rejection [None]
